FAERS Safety Report 9282782 (Version 1)
Quarter: 2013Q2

REPORT INFORMATION
  Report Type: Spontaneous
  Country: US (occurrence: None)
  Receive Date: 20130506
  Receipt Date: 20130506
  Transmission Date: 20140414
  Serious: Yes (Disabling)
  Sender: FDA-Public Use
  Company Number: 2013AP004818

PATIENT
  Age: 54 Year
  Sex: 0

DRUGS (2)
  1. BUPROPION HYDROCHLORIDE TABLETS [Suspect]
  2. ATENOLOL [Suspect]

REACTIONS (2)
  - Stevens-Johnson syndrome [None]
  - Toxic epidermal necrolysis [None]
